FAERS Safety Report 8554027-9 (Version None)
Quarter: 2012Q3

REPORT INFORMATION
  Report Type: 
  Country: None (occurrence: None)
  Receive Date: 20120731
  Receipt Date: 20120726
  Transmission Date: 20120928
  Serious: Yes (Life-Threatening, Hospitalization, Disabling, Other)
  Sender: FDA-Public Use
  Company Number: US-009507513-1207USA002262

PATIENT

DRUGS (6)
  1. LANTUS [Concomitant]
  2. DIOVAN [Concomitant]
  3. METFORMIN HYDROCHLORIDE [Concomitant]
  4. HUMALOG [Concomitant]
  5. JANUVIA [Suspect]
     Indication: TYPE 2 DIABETES MELLITUS
     Dosage: 100 MG, QD
     Route: 048
     Dates: start: 20120330, end: 20120516
  6. TRIAMTERENE [Concomitant]

REACTIONS (2)
  - PANCREATIC CARCINOMA [None]
  - PROSTATE CANCER [None]
